FAERS Safety Report 20190305 (Version 2)
Quarter: 2022Q1

REPORT INFORMATION
  Report Type: Spontaneous
  Country: CN (occurrence: None)
  Receive Date: 20211215
  Receipt Date: 20220105
  Transmission Date: 20220423
  Serious: Yes (Other)
  Sender: FDA-Public Use
  Company Number: 2021A867284

PATIENT
  Age: 364 Day
  Sex: Female

DRUGS (1)
  1. BUDESONIDE [Suspect]
     Active Substance: BUDESONIDE
     Indication: Postoperative care
     Route: 055
     Dates: start: 20211027, end: 20211028

REACTIONS (4)
  - Oedema peripheral [Recovering/Resolving]
  - Hypersensitivity [Recovering/Resolving]
  - Face oedema [Recovering/Resolving]
  - Pruritus [Unknown]

NARRATIVE: CASE EVENT DATE: 20211027
